FAERS Safety Report 18277888 (Version 1)
Quarter: 2020Q3

REPORT INFORMATION
  Report Type: Spontaneous
  Country: JP (occurrence: JP)
  Receive Date: 20200917
  Receipt Date: 20200917
  Transmission Date: 20201103
  Serious: Yes (Hospitalization, Other)
  Sender: FDA-Public Use
  Company Number: JP-TEVA-2020-JP-005895J

PATIENT
  Age: 11 Year
  Sex: Male

DRUGS (2)
  1. PHENOL AND ZINC OXIDE LINIMENT [Concomitant]
     Indication: PRURITUS
     Route: 062
     Dates: start: 20200714
  2. VALACICLOVIR TABLET 500MG ^TEVA^ [Suspect]
     Active Substance: VALACYCLOVIR HYDROCHLORIDE
     Indication: HERPES ZOSTER
     Dosage: 1500 MILLIGRAM DAILY;
     Route: 048
     Dates: start: 20200714, end: 20200715

REACTIONS (1)
  - Stevens-Johnson syndrome [Recovering/Resolving]

NARRATIVE: CASE EVENT DATE: 20200715
